FAERS Safety Report 7661623-X (Version None)
Quarter: 2011Q3

REPORT INFORMATION
  Report Type: 
  Country: None (occurrence: None)
  Receive Date: 20110805
  Receipt Date: 20101117
  Transmission Date: 20111222
  Serious: No
  Sender: FDA-Public Use
  Company Number: US-ABBOTT-10P-163-0686085-00

PATIENT
  Sex: Female
  Weight: 99.88 kg

DRUGS (4)
  1. ASPIRIN [Concomitant]
     Indication: PRODUCT USED FOR UNKNOWN INDICATION
     Dosage: AT BEDTIME
  2. NIASPAN [Suspect]
     Dosage: AT BEDTIME
  3. NIASPAN [Suspect]
     Indication: BLOOD TRIGLYCERIDES INCREASED
     Dosage: AT BEDTIME
     Dates: start: 20101104
  4. NIASPAN [Suspect]
     Indication: LOW DENSITY LIPOPROTEIN
     Dosage: 500MG X 1/2 TABLET FOR 10 DAYS

REACTIONS (5)
  - PRURITUS GENERALISED [None]
  - WRONG TECHNIQUE IN DRUG USAGE PROCESS [None]
  - ERYTHEMA [None]
  - RASH MACULAR [None]
  - BURNING SENSATION [None]
